FAERS Safety Report 16231078 (Version 1)
Quarter: 2019Q2

REPORT INFORMATION
  Report Type: Spontaneous
  Country: CN (occurrence: CN)
  Receive Date: 20190423
  Receipt Date: 20190423
  Transmission Date: 20190711
  Serious: Yes (Disabling)
  Sender: FDA-Public Use
  Company Number: CN-SA-2019SA104330

PATIENT
  Age: 67 Year
  Sex: Male
  Weight: 62.5 kg

DRUGS (6)
  1. PIRACETAM;SODIUM CHLORIDE [Suspect]
     Active Substance: PIRACETAM
     Indication: CEREBRAL INFARCTION
     Dosage: 100 ML, QD
     Route: 041
     Dates: start: 20190327, end: 20190406
  2. ASPIRIN [ACETYLSALICYLIC ACID] [Concomitant]
     Active Substance: ASPIRIN
     Indication: CEREBRAL INFARCTION
     Dosage: 0.1 G, QD
     Route: 048
     Dates: start: 20190327, end: 20190407
  3. CELECOXIB. [Suspect]
     Active Substance: CELECOXIB
     Indication: CEREBRAL INFARCTION
     Dosage: 0.2 G, QD
     Route: 048
     Dates: start: 20190403, end: 20190407
  4. OMEPRAZOLE. [Suspect]
     Active Substance: OMEPRAZOLE
     Indication: CEREBRAL INFARCTION
     Dosage: 20 MG, QD
     Route: 048
     Dates: start: 20190401, end: 20190407
  5. PLAVIX [Suspect]
     Active Substance: CLOPIDOGREL BISULFATE
     Indication: CEREBRAL INFARCTION
     Dosage: 75 MG, QD
     Route: 048
     Dates: start: 20190327, end: 20190407
  6. ROSUVASTATIN CALCIUM. [Suspect]
     Active Substance: ROSUVASTATIN CALCIUM
     Indication: CEREBRAL INFARCTION
     Dosage: 20 MG, QD
     Route: 048
     Dates: start: 20190327, end: 20190407

REACTIONS (1)
  - Hepatic function abnormal [Unknown]

NARRATIVE: CASE EVENT DATE: 20190406
